FAERS Safety Report 10503298 (Version 1)
Quarter: 2014Q4

REPORT INFORMATION
  Report Type: Spontaneous
  Country: US (occurrence: US)
  Receive Date: 20141008
  Receipt Date: 20141008
  Transmission Date: 20150528
  Serious: Yes (Other)
  Sender: FDA-Public Use
  Company Number: US-AMGEN-USASP2014075696

PATIENT
  Age: 63 Year
  Sex: Female
  Weight: 54.36 kg

DRUGS (3)
  1. PROLIA [Suspect]
     Active Substance: DENOSUMAB
     Indication: OSTEOPOROSIS POSTMENOPAUSAL
     Dosage: UNK
     Route: 065
     Dates: start: 201311
  2. LIPITOR [Concomitant]
     Active Substance: ATORVASTATIN CALCIUM
     Dosage: UNK
  3. LEVOTHYROXINE [Concomitant]
     Active Substance: LEVOTHYROXINE
     Dosage: UNK

REACTIONS (9)
  - Night sweats [Unknown]
  - Muscle spasms [Unknown]
  - Hyperhidrosis [Unknown]
  - Hot flush [Unknown]
  - Toothache [Unknown]
  - Cardiac disorder [Unknown]
  - Tooth disorder [Unknown]
  - Sleep disorder due to general medical condition, insomnia type [Unknown]
  - Dental caries [Unknown]
